FAERS Safety Report 20131617 (Version 3)
Quarter: 2022Q3

REPORT INFORMATION
  Report Type: Spontaneous
  Country: CA (occurrence: CA)
  Receive Date: 20211130
  Receipt Date: 20220830
  Transmission Date: 20221027
  Serious: Yes (Other)
  Sender: FDA-Public Use
  Company Number: CA-BAYER-2021A256258

PATIENT
  Sex: Male

DRUGS (1)
  1. VITRAKVI [Suspect]
     Active Substance: LAROTRECTINIB
     Indication: Adenocarcinoma of salivary gland
     Dosage: UNK
     Dates: start: 20200617, end: 202102

REACTIONS (9)
  - Adenocarcinoma of salivary gland [None]
  - Neuropathy peripheral [None]
  - Weight increased [None]
  - Oedema peripheral [None]
  - Headache [None]
  - Memory impairment [None]
  - Mood altered [None]
  - Arthralgia [None]
  - Palmar-plantar erythrodysaesthesia syndrome [None]
